FAERS Safety Report 9280325 (Version 1)
Quarter: 2013Q2

REPORT INFORMATION
  Report Type: Spontaneous
  Country: US (occurrence: US)
  Receive Date: 20130509
  Receipt Date: 20130509
  Transmission Date: 20140414
  Serious: Yes (Hospitalization)
  Sender: FDA-Public Use
  Company Number: US-ELI_LILLY_AND_COMPANY-US201305001097

PATIENT
  Sex: Male

DRUGS (3)
  1. HUMULIN 30% REGULAR, 70% NPH [Suspect]
     Indication: DIABETES MELLITUS
     Dosage: 75 U, UNK
     Dates: start: 2006
  2. HUMULIN NPH [Suspect]
     Indication: DIABETES MELLITUS
     Dosage: UNK
  3. LANTUS [Concomitant]

REACTIONS (4)
  - Pneumonia [Unknown]
  - Chronic obstructive pulmonary disease [Unknown]
  - Hip fracture [Unknown]
  - Femur fracture [Unknown]
